FAERS Safety Report 24524768 (Version 1)
Quarter: 2024Q4

REPORT INFORMATION
  Report Type: Spontaneous
  Country: US (occurrence: US)
  Receive Date: 20241019
  Receipt Date: 20241019
  Transmission Date: 20250115
  Serious: No
  Sender: MERCK
  Company Number: US-009507513-2410USA005018

PATIENT
  Age: 15 Year
  Sex: Male
  Weight: 94.3 kg

DRUGS (22)
  1. WINREVAIR [Suspect]
     Active Substance: SOTATERCEPT-CSRK
     Indication: Product used for unknown indication
     Dosage: UNK
     Route: 058
  2. TREPROSTINIL SODIUM [Suspect]
     Active Substance: TREPROSTINIL SODIUM
     Indication: Pulmonary arterial hypertension
     Dosage: 0.068 MCG/KG, 0.38 MCL PER HOUR, CONTINUOUS, STRENGHT: 10 MG/ML
     Route: 058
     Dates: start: 20240614
  3. TYLENOL [Concomitant]
     Active Substance: ACETAMINOPHEN
  4. BISMUTH SUBSALICYLATE\CALCIUM CARBONATE [Concomitant]
     Active Substance: BISMUTH SUBSALICYLATE\CALCIUM CARBONATE
  5. FLUTICASONE PROPIONATE [Concomitant]
     Active Substance: FLUTICASONE PROPIONATE
  6. LEVALBUTEROL TARTRATE [Concomitant]
     Active Substance: LEVALBUTEROL TARTRATE
  7. ADCIRCA [Concomitant]
     Active Substance: TADALAFIL
  8. MIRALAX [Concomitant]
     Active Substance: POLYETHYLENE GLYCOL 3350
  9. AZELASTINE HYDROCHLORIDE [Concomitant]
     Active Substance: AZELASTINE HYDROCHLORIDE
  10. ADVAIR HFA [Concomitant]
     Active Substance: FLUTICASONE PROPIONATE\SALMETEROL XINAFOATE
  11. TUMS EX [Concomitant]
     Active Substance: CALCIUM CARBONATE
  12. PEPPERMINT OIL [Concomitant]
     Active Substance: PEPPERMINT OIL
  13. BIFIDOBACTERIUM ANIMALIS LACTIS [Concomitant]
     Active Substance: BIFIDOBACTERIUM ANIMALIS LACTIS
  14. OXYGEN [Concomitant]
     Active Substance: OXYGEN
  15. DIGOXIN [Concomitant]
     Active Substance: DIGOXIN
  16. AMBRISENTAN [Concomitant]
     Active Substance: AMBRISENTAN
  17. B COMPLEX AGIO [Concomitant]
  18. MOTRIN IB [Concomitant]
     Active Substance: IBUPROFEN
  19. LORATADINE [Concomitant]
     Active Substance: LORATADINE
  20. SENNOSIDES A AND B [Concomitant]
     Active Substance: SENNOSIDES A AND B
  21. GAS-X [Concomitant]
     Active Substance: DIMETHICONE
  22. PREVACID [Concomitant]
     Active Substance: LANSOPRAZOLE

REACTIONS (4)
  - Abdominal discomfort [Unknown]
  - Constipation [Unknown]
  - Injection site pain [Unknown]
  - Product administered to patient of inappropriate age [Unknown]
